FAERS Safety Report 13415333 (Version 1)
Quarter: 2017Q2

REPORT INFORMATION
  Report Type: Spontaneous
  Country: PL (occurrence: PL)
  Receive Date: 20170407
  Receipt Date: 20170407
  Transmission Date: 20170830
  Serious: Yes (Other)
  Sender: FDA-Public Use
  Company Number: PL-TEVA-755395ACC

PATIENT
  Age: 42 Year
  Sex: Male
  Weight: 75 kg

DRUGS (3)
  1. LOMUSTINE. [Suspect]
     Active Substance: LOMUSTINE
     Indication: BRAIN NEOPLASM MALIGNANT
     Route: 048
     Dates: start: 20160307
  2. VINCRISTINE [Suspect]
     Active Substance: VINCRISTINE
     Indication: BRAIN NEOPLASM MALIGNANT
     Route: 042
     Dates: start: 20160307
  3. PROCARBAZINE [Suspect]
     Active Substance: PROCARBAZINE
     Indication: BRAIN NEOPLASM MALIGNANT
     Route: 048
     Dates: start: 20160307

REACTIONS (2)
  - Neutropenia [Recovering/Resolving]
  - Thrombocytopenia [Recovering/Resolving]

NARRATIVE: CASE EVENT DATE: 20160718
